FAERS Safety Report 19905063 (Version 2)
Quarter: 2023Q1

REPORT INFORMATION
  Report Type: Report from Study
  Country: FR (occurrence: FR)
  Receive Date: 20210930
  Receipt Date: 20230329
  Transmission Date: 20230417
  Serious: Yes (Hospitalization)
  Sender: FDA-Public Use
  Company Number: S200005381

PATIENT

DRUGS (8)
  1. PEGASPARGASE [Suspect]
     Active Substance: PEGASPARGASE
     Indication: Acute lymphocytic leukaemia
     Dosage: 1350 IU, ON D15, D43
     Route: 042
     Dates: start: 20200511, end: 20200709
  2. CYCLOPHOSPHAMIDE [Suspect]
     Active Substance: CYCLOPHOSPHAMIDE
     Indication: Acute lymphocytic leukaemia
     Dosage: 1080 MG, ON D1, D29
     Route: 042
     Dates: start: 20200424, end: 20200526
  3. MERCAPTOPURINE [Suspect]
     Active Substance: MERCAPTOPURINE
     Indication: Acute lymphocytic leukaemia
     Dosage: 50 MG FROM D1 TO D14 AND D29 TO D42
     Route: 048
     Dates: start: 20200424, end: 20200616
  4. VINCRISTINE SULFATE [Suspect]
     Active Substance: VINCRISTINE SULFATE
     Indication: Acute lymphocytic leukaemia
     Dosage: 1.6 MG, ON D15, D22, D43, D50
     Route: 042
     Dates: start: 20200511, end: 20200616
  5. HYDROCORTISONE [Suspect]
     Active Substance: HYDROCORTISONE
     Indication: Acute lymphocytic leukaemia
     Dosage: 15 MG, ON D3, D31
     Route: 037
     Dates: start: 20200429, end: 20200528
  6. METHOTREXATE [Suspect]
     Active Substance: METHOTREXATE
     Indication: Acute lymphocytic leukaemia
     Dosage: 15 MG, D3, D31
     Route: 037
     Dates: start: 20200429, end: 20200528
  7. CYTARABINE [Suspect]
     Active Substance: CYTARABINE
     Indication: Acute lymphocytic leukaemia
     Dosage: 80.2 MG, D4-D6, D10-D13, D31-D34, D38-D40
     Route: 042
     Dates: start: 20200429, end: 20200707
  8. CYTARABINE [Suspect]
     Active Substance: CYTARABINE
     Dosage: 30 MG, D3 AND D31
     Route: 037
     Dates: start: 20200429, end: 20200528

REACTIONS (2)
  - Febrile bone marrow aplasia [Recovered/Resolved]
  - Urinary tract infection [Recovered/Resolved]

NARRATIVE: CASE EVENT DATE: 20200525
